FAERS Safety Report 4736965-8 (Version None)
Quarter: 2005Q3

REPORT INFORMATION
  Report Type: 
  Country: None (occurrence: None)
  Receive Date: 20050804
  Receipt Date: 20050712
  Transmission Date: 20060218
  Serious: Yes (Hospitalization)
  Sender: FDA-Public Use
  Company Number: USA0507102592

PATIENT
  Age: 37 Year
  Sex: Female

DRUGS (4)
  1. CYMBALTA [Suspect]
     Dosage: 60 MG DAY
  2. FLEXERIL (CYCLOBENZAPRINE HYDROCHLORIDE0 [Concomitant]
  3. NEURONTIN [Concomitant]
  4. WELLBUTRIN [Concomitant]

REACTIONS (3)
  - ALCOHOL POISONING [None]
  - LOSS OF CONSCIOUSNESS [None]
  - OVERDOSE [None]
